FAERS Safety Report 25152231 (Version 3)
Quarter: 2025Q2

REPORT INFORMATION
  Report Type: Report from Study
  Country: US (occurrence: US)
  Receive Date: 20250402
  Receipt Date: 20250509
  Transmission Date: 20250717
  Serious: Yes (Other)
  Sender: MYLAN
  Company Number: US-MYLANLABS-2025M1027614

PATIENT
  Sex: Female
  Weight: 73 kg

DRUGS (12)
  1. AMNESTEEM [Suspect]
     Active Substance: ISOTRETINOIN
     Indication: Acne
     Dosage: 40 MILLIGRAM, BID (TWICE A DAY)
     Dates: start: 20241226, end: 20250327
  2. AMNESTEEM [Suspect]
     Active Substance: ISOTRETINOIN
     Dosage: 40 MILLIGRAM, BID (TWICE A DAY)
     Route: 065
     Dates: start: 20241226, end: 20250327
  3. AMNESTEEM [Suspect]
     Active Substance: ISOTRETINOIN
     Dosage: 40 MILLIGRAM, BID (TWICE A DAY)
     Route: 065
     Dates: start: 20241226, end: 20250327
  4. AMNESTEEM [Suspect]
     Active Substance: ISOTRETINOIN
     Dosage: 40 MILLIGRAM, BID (TWICE A DAY)
     Dates: start: 20241226, end: 20250327
  5. ACCUTANE [Suspect]
     Active Substance: ISOTRETINOIN
     Indication: Product used for unknown indication
  6. ACCUTANE [Suspect]
     Active Substance: ISOTRETINOIN
     Route: 065
  7. ACCUTANE [Suspect]
     Active Substance: ISOTRETINOIN
     Route: 065
  8. ACCUTANE [Suspect]
     Active Substance: ISOTRETINOIN
  9. ISOTRETINOIN [Concomitant]
     Active Substance: ISOTRETINOIN
  10. ISOTRETINOIN [Concomitant]
     Active Substance: ISOTRETINOIN
     Route: 065
  11. ISOTRETINOIN [Concomitant]
     Active Substance: ISOTRETINOIN
     Route: 065
  12. ISOTRETINOIN [Concomitant]
     Active Substance: ISOTRETINOIN

REACTIONS (1)
  - Maternal exposure during pregnancy [Unknown]
